FAERS Safety Report 16421151 (Version 1)
Quarter: 2019Q3

REPORT INFORMATION
  Report Type: Spontaneous
  Country: US (occurrence: US)
  Receive Date: 20190611
  Receipt Date: 20190611
  Transmission Date: 20191004
  Serious: No
  Sender: FDA-Public Use
  Company Number: None

PATIENT
  Age: 42 Year
  Sex: Female
  Weight: 58.5 kg

DRUGS (13)
  1. ASTRAGALUS ROOT [Concomitant]
  2. DEXAMETHASONE. [Concomitant]
     Active Substance: DEXAMETHASONE
  3. LORAZEPAM. [Concomitant]
     Active Substance: LORAZEPAM
  4. HYDROCODONE BITARTRATE AND ACETAMINOPHEN [Concomitant]
     Active Substance: ACETAMINOPHEN\HYDROCODONE BITARTRATE
  5. GINGER ROOT [Concomitant]
     Active Substance: GINGER
  6. CURCUMIN 95 [Concomitant]
  7. PRILOSEC [Concomitant]
     Active Substance: OMEPRAZOLE MAGNESIUM
  8. ONDANSETRON [Concomitant]
     Active Substance: ONDANSETRON
  9. TEMOZOLOMIDE. [Suspect]
     Active Substance: TEMOZOLOMIDE
     Indication: BONE CANCER
     Route: 048
     Dates: start: 20190517, end: 20190611
  10. ELIQUIS [Concomitant]
     Active Substance: APIXABAN
  11. VITAMIN D [Concomitant]
     Active Substance: VITAMIN D NOS
  12. IRON [Concomitant]
     Active Substance: IRON
  13. VITAMIN C PLUS [Concomitant]

REACTIONS (1)
  - Disease progression [None]
